FAERS Safety Report 13251748 (Version 16)
Quarter: 2017Q4

REPORT INFORMATION
  Report Type: Spontaneous
  Country: US (occurrence: US)
  Receive Date: 20170220
  Receipt Date: 20171215
  Transmission Date: 20180320
  Serious: Yes (Hospitalization, Other)
  Sender: FDA-Public Use
  Company Number: US-PFIZER INC-2017050025

PATIENT
  Age: 62 Year
  Sex: Male
  Weight: 79.38 kg

DRUGS (10)
  1. SUTENT [Suspect]
     Active Substance: SUNITINIB MALATE
     Dosage: 50 MG, CYCLIC (1 TIME A DAY X 4 WEEKS THEN 2 WEEKS OFF THEN REPEAT)
     Route: 048
     Dates: start: 20170201
  2. TENORMIN [Concomitant]
     Active Substance: ATENOLOL
     Dosage: UNK
  3. XANAX [Concomitant]
     Active Substance: ALPRAZOLAM
     Dosage: UNK
  4. BABY ASPIRIN [Concomitant]
     Active Substance: ASPIRIN
     Dosage: UNK
  5. SUTENT [Suspect]
     Active Substance: SUNITINIB MALATE
     Dosage: 50 MG, CYCLIC (DAILY FOR 28 DAYS ON AND 14 DAYS OFF)
     Dates: start: 20170801
  6. SUTENT [Suspect]
     Active Substance: SUNITINIB MALATE
     Dosage: 50 MG, CYCLIC (DAILY FOR 28 DAYS ON AND 14 DAYS OFF)
     Dates: start: 20170419, end: 20170531
  7. SUTENT [Suspect]
     Active Substance: SUNITINIB MALATE
     Dosage: 50 MG, CYCLIC (TAKE ONE CAPSULE ONE TIME A DAY FOR 4 WEEKS AND 2 WEEKS OF AND REPEAT)
     Dates: start: 201703
  8. CELEXA [Concomitant]
     Active Substance: CITALOPRAM HYDROBROMIDE
     Dosage: UNK
  9. SUTENT [Suspect]
     Active Substance: SUNITINIB MALATE
     Indication: METASTATIC RENAL CELL CARCINOMA
     Dosage: 50 MG, 1X/DAY
     Dates: start: 201701
  10. SUTENT [Suspect]
     Active Substance: SUNITINIB MALATE
     Dosage: 50 MG, CYCLIC (DAILY FOR 28 DAYS ON AND 14 DAYS OFF)
     Route: 048
     Dates: start: 20170208, end: 20170328

REACTIONS (20)
  - Dehydration [Unknown]
  - Rash [Unknown]
  - Pyrexia [Unknown]
  - Decreased appetite [Recovering/Resolving]
  - Nervousness [Unknown]
  - Wound infection [Recovered/Resolved]
  - Localised infection [Recovering/Resolving]
  - Muscle spasms [Unknown]
  - Anxiety [Unknown]
  - Nausea [Recovering/Resolving]
  - Tremor [Recovering/Resolving]
  - Asthenia [Recovering/Resolving]
  - Osteomyelitis [Unknown]
  - Irritability [Unknown]
  - Malaise [Unknown]
  - Diarrhoea [Recovered/Resolved]
  - Infection [Recovered/Resolved]
  - Pruritus [Unknown]
  - Anger [Unknown]
  - Amnesia [Unknown]

NARRATIVE: CASE EVENT DATE: 2017
